FAERS Safety Report 6292919-4 (Version None)
Quarter: 2009Q3

REPORT INFORMATION
  Report Type: 
  Country: None (occurrence: None)
  Receive Date: 20090731
  Receipt Date: 20090721
  Transmission Date: 20100115
  Serious: Yes (Death)
  Sender: FDA-Public Use
  Company Number: BE-PFIZER INC-2008082921

PATIENT
  Age: 79 Year

DRUGS (9)
  1. SUTENT [Suspect]
     Indication: NEUROENDOCRINE TUMOUR
     Dosage: 0 MG, 1X/DAY
     Route: 048
     Dates: start: 20080826, end: 20080920
  2. CO-DERGOCRINE MESILATE [Concomitant]
     Dates: start: 19940101
  3. LANSOPRAZOLE [Concomitant]
     Dates: start: 20060101
  4. ALPRAZOLAM [Concomitant]
     Dates: start: 20060101
  5. FENOFIBRATE [Concomitant]
     Dates: start: 20030101
  6. SOMATULINA [Concomitant]
     Dates: start: 20060101
  7. PARACETAMOL [Concomitant]
     Dates: start: 20080717
  8. LOPERAMIDE HYDROCHLORIDE [Concomitant]
     Dates: start: 20080910
  9. METOCLOPRAMIDE [Concomitant]
     Dates: start: 20080910

REACTIONS (11)
  - ABDOMINAL PAIN [None]
  - ALANINE AMINOTRANSFERASE INCREASED [None]
  - ASPARTATE AMINOTRANSFERASE INCREASED [None]
  - BLOOD ALKALINE PHOSPHATASE INCREASED [None]
  - BLOOD LACTATE DEHYDROGENASE INCREASED [None]
  - DEHYDRATION [None]
  - DIARRHOEA [None]
  - INFLAMMATION [None]
  - INTERNATIONAL NORMALISED RATIO INCREASED [None]
  - RENAL FAILURE [None]
  - VOMITING [None]
